FAERS Safety Report 20371587 (Version 1)
Quarter: 2022Q1

REPORT INFORMATION
  Report Type: Spontaneous
  Country: MX (occurrence: MX)
  Receive Date: 20220124
  Receipt Date: 20220124
  Transmission Date: 20220423
  Serious: Yes (Death, Other)
  Sender: FDA-Public Use
  Company Number: MX-TAKEDA-2021TUS075467

PATIENT
  Age: 33 Year
  Sex: Female

DRUGS (1)
  1. ICLUSIG [Suspect]
     Active Substance: PONATINIB
     Indication: Chronic myeloid leukaemia
     Dosage: 45 MILLIGRAM
     Route: 048
     Dates: start: 20211004

REACTIONS (2)
  - Death [Fatal]
  - Skin toxicity [Unknown]

NARRATIVE: CASE EVENT DATE: 20220119
